FAERS Safety Report 18663687 (Version 10)
Quarter: 2021Q4

REPORT INFORMATION
  Report Type: Spontaneous
  Country: ES (occurrence: ES)
  Receive Date: 20201224
  Receipt Date: 20211129
  Transmission Date: 20220303
  Serious: Yes (Other)
  Sender: FDA-Public Use
  Company Number: ES-DSJP-DSE-2020-136153

PATIENT
  Age: 54 Year
  Sex: Female

DRUGS (1)
  1. OLMESARTAN [Suspect]
     Active Substance: OLMESARTAN
     Indication: Hypertension
     Dosage: 40 MILLIGRAM, 1 MONTHLY
     Route: 065

REACTIONS (10)
  - Drug-induced liver injury [Recovered/Resolved]
  - Weight decreased [Recovering/Resolving]
  - Autoimmune hepatitis [Recovering/Resolving]
  - Hepatitis acute [Recovered/Resolved]
  - Hepatic steatosis [Recovered/Resolved]
  - Hypertransaminasaemia [Recovered/Resolved]
  - Lymphocytic infiltration [Recovered/Resolved]
  - Hepatic fibrosis [Recovered/Resolved]
  - Antinuclear antibody positive [Recovered/Resolved]
  - Asthenia [Recovered/Resolved]
